FAERS Safety Report 15018417 (Version 1)
Quarter: 2018Q2

REPORT INFORMATION
  Report Type: Report from Study
  Country: US (occurrence: US)
  Receive Date: 20180615
  Receipt Date: 20180615
  Transmission Date: 20180711
  Serious: Yes (Other)
  Sender: FDA-Public Use
  Company Number: US-TEVA-2018-US-907228

PATIENT
  Age: 64 Year
  Sex: Female

DRUGS (20)
  1. AMLODIPINE [Concomitant]
     Active Substance: AMLODIPINE BESYLATE
  2. PRAVASTATIN. [Concomitant]
     Active Substance: PRAVASTATIN
  3. REFRESH [Concomitant]
     Active Substance: UNSPECIFIED INGREDIENT
  4. ADVAIR DISKU [Concomitant]
  5. FOLIC ACID. [Concomitant]
     Active Substance: FOLIC ACID
  6. OMEPRAZOLE. [Concomitant]
     Active Substance: OMEPRAZOLE
  7. COPAXONE [Suspect]
     Active Substance: GLATIRAMER ACETATE
     Indication: MULTIPLE SCLEROSIS
     Route: 058
     Dates: start: 20180228
  8. FLONASE [Concomitant]
     Active Substance: FLUTICASONE PROPIONATE
  9. GABAPENTIN. [Concomitant]
     Active Substance: GABAPENTIN
  10. PILOCARPINE. [Concomitant]
     Active Substance: PILOCARPINE
  11. PRAMIPEXOLE. [Concomitant]
     Active Substance: PRAMIPEXOLE
  12. FISH-OIL [Concomitant]
  13. METHOTREXATE. [Concomitant]
     Active Substance: METHOTREXATE
  14. IBUPROFEN. [Concomitant]
     Active Substance: IBUPROFEN
  15. MODAFINIL. [Concomitant]
     Active Substance: MODAFINIL
  16. MYRBETRIQ [Concomitant]
     Active Substance: MIRABEGRON
  17. NAPROXEN. [Concomitant]
     Active Substance: NAPROXEN
  18. BOTOX [Concomitant]
     Active Substance: ONABOTULINUMTOXINA
  19. POTASSIUM [Concomitant]
     Active Substance: POTASSIUM
  20. VITAMIN D3 [Concomitant]
     Active Substance: CHOLECALCIFEROL

REACTIONS (8)
  - Urinary incontinence [Not Recovered/Not Resolved]
  - Anal incontinence [Not Recovered/Not Resolved]
  - Pain [Not Recovered/Not Resolved]
  - Eye operation [Not Recovered/Not Resolved]
  - Visual impairment [Unknown]
  - Injection site pain [Unknown]
  - Urinary tract infection [Not Recovered/Not Resolved]
  - Dry eye [Unknown]

NARRATIVE: CASE EVENT DATE: 2018
